FAERS Safety Report 17248853 (Version 2)
Quarter: 2020Q1

REPORT INFORMATION
  Report Type: Spontaneous
  Country: US (occurrence: US)
  Receive Date: 20200108
  Receipt Date: 20200121
  Transmission Date: 20200409
  Serious: Yes (Hospitalization, Other)
  Sender: FDA-Public Use
  Company Number: US-TEVA-2020-US-1163312

PATIENT
  Age: 34 Year
  Sex: Male

DRUGS (6)
  1. ATOMOXETINE. [Suspect]
     Active Substance: ATOMOXETINE HYDROCHLORIDE
     Indication: ATTENTION DEFICIT/HYPERACTIVITY DISORDER
     Dosage: 80 MILLIGRAM DAILY; AT BEDTIME
     Route: 065
  2. MIRTAZAPINE. [Suspect]
     Active Substance: MIRTAZAPINE
     Dosage: AT BEDTIME
     Route: 065
  3. ZOLPIDEM [Suspect]
     Active Substance: ZOLPIDEM TARTRATE
     Dosage: HE IMMEDIATELY STARTED TAKING 30 MG AT BEDTIME.
     Route: 065
  4. DULOXETINE. [Suspect]
     Active Substance: DULOXETINE
     Dosage: AT BEDTIME
     Route: 065
  5. VERAPAMIL [Concomitant]
     Active Substance: VERAPAMIL HYDROCHLORIDE
     Indication: HYPERTENSION
     Route: 065
  6. ZOLPIDEM [Suspect]
     Active Substance: ZOLPIDEM TARTRATE
     Indication: INSOMNIA
     Dosage: HE WAS PRESCRIBED A 30-DAY REGIMEN OF 10 MG ZOLPIDEM AT BEDTIME.
     Route: 065

REACTIONS (10)
  - Disorientation [Recovered/Resolved]
  - Intentional self-injury [Recovered/Resolved]
  - Delirium [Recovered/Resolved]
  - Hallucination, auditory [Recovered/Resolved]
  - Fear [Recovered/Resolved]
  - Memory impairment [Recovered/Resolved]
  - Intentional product misuse [Unknown]
  - Aggression [Recovered/Resolved]
  - Anger [Recovered/Resolved]
  - Loss of personal independence in daily activities [Unknown]
